FAERS Safety Report 12418693 (Version 1)
Quarter: 2016Q2

REPORT INFORMATION
  Report Type: Spontaneous
  Country: US (occurrence: None)
  Receive Date: 20160527
  Receipt Date: 20160527
  Transmission Date: 20160815
  Serious: Yes (Other)
  Sender: FDA-Public Use
  Company Number: None

PATIENT
  Age: 17 Year
  Sex: Male
  Weight: 57.1 kg

DRUGS (3)
  1. VASOPRESSIN. [Concomitant]
     Active Substance: VASOPRESSIN
  2. DOPAMINE, [Suspect]
     Active Substance: DOPAMINE HYDROCHLORIDE
     Indication: HYPOTENSION
     Dosage: 3 UG/KG 3MCG/KG/MIN INTRAVENOUS DRIP
     Route: 041
  3. DOPAMINE, [Suspect]
     Active Substance: DOPAMINE HYDROCHLORIDE
     Indication: BRADYCARDIA
     Dosage: 3 UG/KG 3MCG/KG/MIN INTRAVENOUS DRIP
     Route: 041

REACTIONS (5)
  - Palpitations [None]
  - Urticaria [None]
  - Dyspnoea [None]
  - Chills [None]
  - Chest pain [None]

NARRATIVE: CASE EVENT DATE: 20160525
